FAERS Safety Report 11320262 (Version 2)
Quarter: 2015Q4

REPORT INFORMATION
  Report Type: Spontaneous
  Country: FR (occurrence: FR)
  Receive Date: 20150729
  Receipt Date: 20151027
  Transmission Date: 20160304
  Serious: Yes (Other)
  Sender: FDA-Public Use
  Company Number: FR-TEVA-581555ISR

PATIENT
  Age: 67 Year
  Sex: Male
  Weight: 80 kg

DRUGS (11)
  1. VIRAMUNE [Suspect]
     Active Substance: NEVIRAPINE
     Dosage: 400 MILLIGRAM DAILY;
     Route: 048
     Dates: start: 1998
  2. DITROPAN [Suspect]
     Active Substance: OXYBUTYNIN CHLORIDE
     Dosage: 2.5 MILLIGRAM DAILY; BREAKABLE TABLET
     Route: 048
     Dates: start: 2012
  3. VIAGRA [Concomitant]
     Active Substance: SILDENAFIL CITRATE
     Route: 048
     Dates: start: 2014
  4. VALSARTAN TEVA 40 MG [Suspect]
     Active Substance: VALSARTAN
     Dosage: 40 MILLIGRAM DAILY; FORM: BREAKABLE TABLET
     Route: 048
     Dates: start: 2012
  5. KARDEGIC [Suspect]
     Active Substance: ASPIRIN LYSINE
     Dosage: 75 MILLIGRAM DAILY;
     Route: 048
     Dates: start: 2012
  6. CYMBALTA [Suspect]
     Active Substance: DULOXETINE HYDROCHLORIDE
     Dosage: 60 MILLIGRAM DAILY; GASTRO-RESISTANT CAPSULE
     Route: 048
     Dates: start: 2012
  7. FLUVASTATINE TEVA LP 80 MG [Suspect]
     Active Substance: FLUVASTATIN SODIUM
     Dosage: 80 MILLIGRAM DAILY; FORM: PROLONGED-RELEASE TABLET.
     Route: 048
     Dates: start: 2012
  8. GLIMEPIRIDE TEVA 3 MG [Suspect]
     Active Substance: GLIMEPIRIDE
     Dosage: 3 MILLIGRAM DAILY;
     Route: 048
     Dates: start: 2012
  9. LANTUS [Suspect]
     Active Substance: INSULIN GLARGINE
     Dosage: 36 IU (INTERNATIONAL UNIT) DAILY;
     Route: 058
     Dates: start: 2012
  10. TRUVADA [Suspect]
     Active Substance: EMTRICITABINE\TENOFOVIR DISOPROXIL FUMARATE
     Dosage: 1 DOSAGE FORMS DAILY; EMTRICITABINE 200 MG + TENOFOVIR DISOPROXIL FUMARATE 245 MG.
     Route: 048
     Dates: start: 1998
  11. EUCREAS [Suspect]
     Active Substance: METFORMIN HYDROCHLORIDE\VILDAGLIPTIN
     Dosage: 2 DOSAGE FORMS DAILY; METFORMIN HYDROCHLORIDE 1000 MG + VILDAGLIPTINE 50 MG.
     Route: 048
     Dates: start: 2012, end: 20150827

REACTIONS (2)
  - Pancreatitis acute [Recovering/Resolving]
  - Abdominal pain [Unknown]

NARRATIVE: CASE EVENT DATE: 20150510
